FAERS Safety Report 4437579-X (Version None)
Quarter: 2004Q3

REPORT INFORMATION
  Report Type: 
  Country: None (occurrence: None)
  Receive Date: 20040827
  Receipt Date: 20040819
  Transmission Date: 20050211
  Serious: Yes (Disabling)
  Sender: FDA-Public Use
  Company Number: HQWYE430819AUG04

PATIENT
  Sex: Female

DRUGS (1)
  1. EFFEXOR [Suspect]
     Dosage: ^ATTEMPTED TO STEP DOWN, BUT QUICKLY STEPPED BACK UP^
     Dates: start: 20031201

REACTIONS (2)
  - DISTURBANCE IN SOCIAL BEHAVIOUR [None]
  - MANIA [None]
